FAERS Safety Report 14929083 (Version 2)
Quarter: 2019Q4

REPORT INFORMATION
  Report Type: Spontaneous
  Country: FR (occurrence: FR)
  Receive Date: 20180523
  Receipt Date: 20191025
  Transmission Date: 20200122
  Serious: Yes (Hospitalization)
  Sender: FDA-Public Use
  Company Number: FR-PFIZER INC-2018206032

PATIENT
  Age: 55 Year
  Sex: Male

DRUGS (5)
  1. AMIKACINE /00391001/ [Suspect]
     Active Substance: AMIKACIN
     Indication: POST PROCEDURAL SEPSIS
     Dosage: UNK
     Dates: start: 20180115, end: 20180117
  2. MEROPENEM. [Suspect]
     Active Substance: MEROPENEM
     Indication: POST PROCEDURAL SEPSIS
     Dosage: 6 G, UNK
     Route: 042
     Dates: start: 20180117, end: 20180122
  3. CANCIDAS [Suspect]
     Active Substance: CASPOFUNGIN ACETATE
     Indication: POST PROCEDURAL SEPSIS
     Dosage: 1 DF, UNK
     Route: 042
     Dates: start: 20180117, end: 20180122
  4. TAZOCILLINE [Suspect]
     Active Substance: PIPERACILLIN SODIUM\TAZOBACTAM SODIUM
     Indication: POST PROCEDURAL SEPSIS
     Dosage: 4 DF, UNK
     Route: 042
     Dates: start: 20180115, end: 20180116
  5. VANCOMYCIN HCL [Suspect]
     Active Substance: VANCOMYCIN HYDROCHLORIDE
     Indication: POST PROCEDURAL SEPSIS
     Dosage: 2000 MG, UNK
     Dates: start: 20180116, end: 20180117

REACTIONS (2)
  - Blood creatinine increased [Recovered/Resolved]
  - Haematuria [Recovered/Resolved]

NARRATIVE: CASE EVENT DATE: 20180117
